FAERS Safety Report 6715927-5 (Version None)
Quarter: 2010Q2

REPORT INFORMATION
  Report Type: 
  Country: None (occurrence: None)
  Receive Date: 20100507
  Receipt Date: 20100503
  Transmission Date: 20101027
  Serious: Yes (Life-Threatening)
  Sender: FDA-Public Use
  Company Number: PHHY2010US28571

PATIENT
  Sex: Female

DRUGS (3)
  1. RECLAST [Suspect]
  2. TYLENOL-500 [Suspect]
     Dosage: EVERY 4 HOURS
  3. IBUPROFEN [Suspect]

REACTIONS (8)
  - ABDOMINAL PAIN UPPER [None]
  - BONE PAIN [None]
  - CHEST PAIN [None]
  - CHILLS [None]
  - FEELING ABNORMAL [None]
  - HEADACHE [None]
  - MUSCLE SPASMS [None]
  - PAIN [None]
